FAERS Safety Report 4729877-7 (Version None)
Quarter: 2005Q3

REPORT INFORMATION
  Report Type: 
  Country: None (occurrence: None)
  Receive Date: 20050801
  Receipt Date: 20050207
  Transmission Date: 20060218
  Serious: No
  Sender: FDA-Public Use
  Company Number: US-BRISTOL-MYERS SQUIBB COMPANY-12851333

PATIENT
  Age: 66 Year
  Sex: Female
  Weight: 51 kg

DRUGS (1)
  1. EURAX CREAM [Suspect]
     Indication: ARTHROPOD BITE
     Route: 061

REACTIONS (2)
  - BURNING SENSATION [None]
  - PARAESTHESIA [None]
